FAERS Safety Report 9921873 (Version 1)
Quarter: 2014Q1

REPORT INFORMATION
  Report Type: Spontaneous
  Country: US (occurrence: None)
  Receive Date: 20140221
  Receipt Date: 20140221
  Transmission Date: 20141002
  Serious: Yes (Disabling)
  Sender: FDA-Public Use
  Company Number: None

PATIENT
  Age: 64 Year
  Sex: Male
  Weight: 108.86 kg

DRUGS (8)
  1. PRAVASTATIN [Suspect]
     Indication: BLOOD CHOLESTEROL
     Route: 048
  2. LISOPRIL [Concomitant]
  3. PROVASTATIN [Concomitant]
  4. ALLOPURINOL [Concomitant]
  5. VESICARE [Concomitant]
  6. VITAMIN A, D AND C [Concomitant]
  7. NIACIN [Concomitant]
  8. ASPRIN [Concomitant]

REACTIONS (2)
  - Pain [None]
  - Product substitution issue [None]
